FAERS Safety Report 23926229 (Version 2)
Quarter: 2024Q2

REPORT INFORMATION
  Report Type: Spontaneous
  Country: PY (occurrence: PY)
  Receive Date: 20240531
  Receipt Date: 20240621
  Transmission Date: 20240716
  Serious: Yes (Hospitalization)
  Sender: FDA-Public Use
  Company Number: PY-BIOMARINAP-PY-2024-158263

PATIENT

DRUGS (5)
  1. VOXZOGO [Suspect]
     Active Substance: VOSORITIDE
     Indication: Osteochondrodysplasia
     Dosage: 0.25 MILLILITER, QD
     Route: 065
     Dates: start: 20240420, end: 20240429
  2. VOXZOGO [Suspect]
     Active Substance: VOSORITIDE
     Dosage: 0.25 MILLILITER, QD
     Route: 065
     Dates: start: 20240313
  3. ONDANSETRON [Concomitant]
     Active Substance: ONDANSETRON
     Indication: Vomiting
     Dosage: UNK
     Route: 060
     Dates: start: 202404
  4. ONDANSETRON [Concomitant]
     Active Substance: ONDANSETRON
     Indication: Abdominal pain upper
  5. DIPYRONE [Concomitant]
     Active Substance: DIPYRONE
     Indication: Pyrexia
     Dosage: UNK
     Dates: start: 202404

REACTIONS (7)
  - Influenza [Recovered/Resolved]
  - Dengue fever [Recovered/Resolved]
  - Pyrexia [Recovered/Resolved]
  - Discomfort [Recovered/Resolved]
  - Blood creatine phosphokinase increased [Recovered/Resolved]
  - Respiratory symptom [Recovered/Resolved]
  - Malaise [Recovered/Resolved]

NARRATIVE: CASE EVENT DATE: 20240429
